FAERS Safety Report 9915322 (Version 3)
Quarter: 2014Q1

REPORT INFORMATION
  Report Type: Spontaneous
  Country: JP (occurrence: JP)
  Receive Date: 20140221
  Receipt Date: 20140317
  Transmission Date: 20141002
  Serious: Yes (Hospitalization, Other)
  Sender: FDA-Public Use
  Company Number: JP-ROCHE-1352608

PATIENT
  Age: 11 Year
  Sex: Male
  Weight: 66 kg

DRUGS (1)
  1. TAMIFLU [Suspect]
     Indication: INFLUENZA
     Dosage: DOSAGE IS UNCERTAIN.
     Route: 048
     Dates: start: 201402

REACTIONS (3)
  - Spinal compression fracture [Recovering/Resolving]
  - Abnormal behaviour [Not Recovered/Not Resolved]
  - Epiphysiolysis [Recovering/Resolving]
